FAERS Safety Report 8817399 (Version 1)
Quarter: 2012Q4

REPORT INFORMATION
  Report Type: 
  Country: SK (occurrence: SK)
  Receive Date: 20121004
  Receipt Date: 20121004
  Transmission Date: 20130627
  Serious: Yes (Death)
  Sender: FDA-Public Use
  Company Number: SK-PFIZER INC-2012246113

PATIENT
  Age: 61 Year
  Sex: Male

DRUGS (4)
  1. EPIPEN [Suspect]
     Indication: HYPERSENSITIVITY
     Dosage: UNK
     Dates: start: 2011, end: 2011
  2. RYTMONORM [Concomitant]
     Dosage: 450 mg, 1 in 1 D
     Route: 048
  3. GOPTEN ^ABBOTT^ [Concomitant]
     Dosage: 2 mg, 1 in 1 D
     Route: 048
  4. ANOPYRIN [Concomitant]
     Dosage: 100 mg, 1 in 1 D
     Route: 048

REACTIONS (1)
  - Death [Fatal]
